FAERS Safety Report 5423764-7 (Version None)
Quarter: 2007Q3

REPORT INFORMATION
  Report Type: 
  Country: None (occurrence: None)
  Receive Date: 20070727
  Receipt Date: 20040401
  Transmission Date: 20080115
  Serious: Yes (Hospitalization)
  Sender: FDA-Public Use
  Company Number: THYM-10069

PATIENT
  Age: 46 Year
  Sex: Male

DRUGS (2)
  1. THYMOGLOBULIN [Suspect]
     Indication: RENAL TRANSPLANT
     Dosage: 175 MG, 50 MG
     Dates: start: 20030716, end: 20030719
  2. THYMOGLOBULIN [Suspect]
     Indication: RENAL TRANSPLANT
     Dosage: 50 MG

REACTIONS (1)
  - PNEUMONIA [None]
